FAERS Safety Report 4872995-3 (Version None)
Quarter: 2005Q4

REPORT INFORMATION
  Report Type: 
  Country: None (occurrence: None)
  Receive Date: 20051201
  Receipt Date: 20050802
  Transmission Date: 20060501
  Serious: No
  Sender: FDA-Public Use
  Company Number: 2005PV000864

PATIENT
  Age: 67 Year
  Sex: Female
  Weight: 116.1208 kg

DRUGS (10)
  1. BYETTA [Suspect]
     Indication: DIABETES MELLITUS NON-INSULIN-DEPENDENT
     Dosage: 5 MCG; BID; SC
     Route: 058
     Dates: start: 20050718
  2. ZOCOR [Concomitant]
  3. HYDROCHLOROTHIAZIDE [Concomitant]
  4. GLUCOPHAGE [Concomitant]
  5. TOPROL-XL [Concomitant]
  6. LOTREL [Concomitant]
  7. ZETIA [Concomitant]
  8. ACTOS [Concomitant]
  9. NIASPAN [Concomitant]
  10. ASPIRIN [Concomitant]

REACTIONS (5)
  - COUGH [None]
  - LOCALISED OEDEMA [None]
  - PHARYNGEAL ERYTHEMA [None]
  - PHARYNGEAL OEDEMA [None]
  - SNEEZING [None]
